FAERS Safety Report 9024948 (Version 1)
Quarter: 2013Q1

REPORT INFORMATION
  Report Type: Report from Study
  Country: CA (occurrence: CA)
  Receive Date: 20130121
  Receipt Date: 20130121
  Transmission Date: 20140127
  Serious: Yes (Hospitalization)
  Sender: FDA-Public Use
  Company Number: CA-JNJFOC-20121213782

PATIENT
  Age: 27 None
  Sex: Female
  Weight: 85.28 kg

DRUGS (7)
  1. REMICADE [Suspect]
     Indication: CROHN^S DISEASE
     Dosage: LOADING DOSE NO. 2
     Route: 042
     Dates: end: 20121221
  2. REMICADE [Suspect]
     Indication: CROHN^S DISEASE
     Route: 042
     Dates: start: 20121129
  3. REMICADE [Suspect]
     Indication: CROHN^S DISEASE
     Route: 042
     Dates: start: 20110308, end: 20110713
  4. PREDNISONE [Concomitant]
     Indication: CROHN^S DISEASE
     Route: 065
  5. ASACOL [Concomitant]
     Indication: CROHN^S DISEASE
     Route: 065
  6. IMURAN [Concomitant]
     Indication: CROHN^S DISEASE
     Route: 065
  7. MEZAVANT [Concomitant]
     Route: 065

REACTIONS (4)
  - Rectal haemorrhage [Unknown]
  - Diarrhoea [Unknown]
  - Crohn^s disease [Unknown]
  - Abdominal pain [Unknown]
